FAERS Safety Report 12413847 (Version 1)
Quarter: 2016Q2

REPORT INFORMATION
  Report Type: Spontaneous
  Country: US (occurrence: US)
  Receive Date: 20160527
  Receipt Date: 20160527
  Transmission Date: 20160815
  Serious: Yes (Death)
  Sender: FDA-Public Use
  Company Number: US-HAEMONETICS CORP-1052928

PATIENT
  Age: 58 Year
  Sex: Male
  Weight: 70.91 kg

DRUGS (1)
  1. HAEMONETICS ANTICOAGULANT SODIUM CITRATE [Suspect]
     Active Substance: TRISODIUM CITRATE DIHYDRATE
     Indication: ANTICOAGULANT THERAPY
     Route: 042
     Dates: start: 20160425, end: 20160425

REACTIONS (1)
  - Death [Fatal]

NARRATIVE: CASE EVENT DATE: 20160425
